FAERS Safety Report 11295973 (Version 1)
Quarter: 2015Q3

REPORT INFORMATION
  Report Type: Spontaneous
  Country: US (occurrence: None)
  Receive Date: 20150722
  Receipt Date: 20150722
  Transmission Date: 20151125
  Serious: Yes (Life-Threatening, Other)
  Sender: FDA-Public Use
  Company Number: None

PATIENT
  Age: 27 Year
  Sex: Male
  Weight: 63.6 kg

DRUGS (5)
  1. HALOPERIDOL. [Concomitant]
     Active Substance: HALOPERIDOL
  2. VITAMIN D [Concomitant]
     Active Substance: CHOLECALCIFEROL
  3. INSULIN REGULAR [Concomitant]
     Active Substance: INSULIN NOS
  4. DIPHENHYDRAMINE. [Concomitant]
     Active Substance: DIPHENHYDRAMINE
  5. LANTUS [Suspect]
     Active Substance: INSULIN GLARGINE
     Indication: TYPE 1 DIABETES MELLITUS
     Dosage: 30 UNITS QHS/BEDTIME SUBCUTANEOUS
     Route: 058
     Dates: start: 20150523, end: 20150529

REACTIONS (1)
  - Gait disturbance [None]

NARRATIVE: CASE EVENT DATE: 20150524
